FAERS Safety Report 5921681-7 (Version None)
Quarter: 2008Q4

REPORT INFORMATION
  Report Type: 
  Country: None (occurrence: None)
  Receive Date: 20081016
  Receipt Date: 20081016
  Transmission Date: 20090506
  Serious: Yes (Hospitalization, Other)
  Sender: FDA-Public Use
  Company Number: None

PATIENT
  Age: 60 Year
  Sex: Female
  Weight: 105.7 kg

DRUGS (1)
  1. TIGECYCLINE 50 MG WYETH [Suspect]
     Indication: STAPHYLOCOCCAL INFECTION
     Dosage: 100 MG ONCE IV BOLUS  : 50 MG EVERY 12 HOURS IV BOLUS
     Route: 040
     Dates: start: 20080925, end: 20081001

REACTIONS (1)
  - PANCREATITIS [None]
